FAERS Safety Report 10022719 (Version 1)
Quarter: 2014Q1

REPORT INFORMATION
  Report Type: Spontaneous
  Country: GB (occurrence: GB)
  Receive Date: 20140319
  Receipt Date: 20140319
  Transmission Date: 20141002
  Serious: Yes (Disabling)
  Sender: FDA-Public Use
  Company Number: GB-PFIZER INC-2014077143

PATIENT
  Age: 50 Year
  Sex: 0
  Weight: 82.55 kg

DRUGS (3)
  1. RAMIPRIL [Suspect]
     Dosage: 2.5 MG, UNK
     Route: 048
     Dates: start: 20131212
  2. MIRTAZAPINE [Concomitant]
     Dosage: UNK
     Route: 065
  3. THIAMINE [Concomitant]
     Dosage: UNK
     Route: 065

REACTIONS (5)
  - Oral pain [Not Recovered/Not Resolved]
  - Mouth haemorrhage [Not Recovered/Not Resolved]
  - Oropharyngeal pain [Not Recovered/Not Resolved]
  - Headache [Not Recovered/Not Resolved]
  - Sinusitis [Not Recovered/Not Resolved]
